FAERS Safety Report 7355464-0 (Version None)
Quarter: 2011Q1

REPORT INFORMATION
  Report Type: 
  Country: None (occurrence: None)
  Receive Date: 20110316
  Receipt Date: 20110309
  Transmission Date: 20110831
  Serious: Yes (Other)
  Sender: FDA-Public Use
  Company Number: JP-ELI_LILLY_AND_COMPANY-JP201103003026

PATIENT
  Age: 57 Year
  Sex: Female

DRUGS (2)
  1. GEMZAR [Suspect]
     Indication: LUNG ADENOCARCINOMA STAGE II
     Route: 042
     Dates: start: 20050601
  2. VINORELBINE TARTRATE [Concomitant]
     Indication: LUNG ADENOCARCINOMA STAGE II
     Dates: start: 20050601

REACTIONS (1)
  - ILEUS [None]
